FAERS Safety Report 14231692 (Version 1)
Quarter: 2017Q4

REPORT INFORMATION
  Report Type: Spontaneous
  Country: US (occurrence: US)
  Receive Date: 20171128
  Receipt Date: 20171128
  Transmission Date: 20180321
  Serious: No
  Sender: FDA-Public Use
  Company Number: US-GLAXOSMITHKLINE-US2017179327

PATIENT
  Sex: Female

DRUGS (1)
  1. COREG CR [Suspect]
     Active Substance: CARVEDILOL PHOSPHATE
     Indication: VENTRICULAR EXTRASYSTOLES
     Dosage: 40 MG, QD
     Dates: start: 20170609, end: 20170609

REACTIONS (3)
  - Drug prescribing error [Unknown]
  - Product use in unapproved indication [Unknown]
  - Off label use [Unknown]
